FAERS Safety Report 6727198-4 (Version None)
Quarter: 2010Q2

REPORT INFORMATION
  Report Type: 
  Country: None (occurrence: None)
  Receive Date: 20100517
  Receipt Date: 20100505
  Transmission Date: 20101027
  Serious: Yes (Other)
  Sender: FDA-Public Use
  Company Number: CA-JNJFOC-20100503597

PATIENT
  Sex: Female

DRUGS (4)
  1. CHILDREN'S MOTRIN [Suspect]
     Route: 048
  2. CHILDREN'S MOTRIN [Suspect]
     Indication: TERMINAL STATE
     Route: 048
  3. CHILDREN'S TYLENOL [Suspect]
     Route: 048
  4. CHILDREN'S TYLENOL [Suspect]
     Indication: TERMINAL STATE
     Route: 048

REACTIONS (2)
  - GASTRIC HAEMORRHAGE [None]
  - PRODUCT QUALITY ISSUE [None]
